FAERS Safety Report 8965568 (Version 1)
Quarter: 2012Q4

REPORT INFORMATION
  Report Type: Spontaneous
  Country: US (occurrence: None)
  Receive Date: 20121212
  Receipt Date: 20121212
  Transmission Date: 20130627
  Serious: No
  Sender: FDA-Public Use
  Company Number: None

PATIENT

DRUGS (1)
  1. LEXAPRO [Suspect]

REACTIONS (4)
  - Convulsion [None]
  - Feeling abnormal [None]
  - Speech disorder [None]
  - Gait disturbance [None]
